FAERS Safety Report 5112910-0 (Version None)
Quarter: 2006Q3

REPORT INFORMATION
  Report Type: 
  Country: None (occurrence: None)
  Receive Date: 20060922
  Receipt Date: 20060724
  Transmission Date: 20061208
  Serious: Yes (Hospitalization)
  Sender: FDA-Public Use
  Company Number: JP-BRISTOL-MYERS SQUIBB COMPANY-13461140

PATIENT
  Age: 65 Year
  Sex: Female

DRUGS (11)
  1. GATIFLO TABS 100 MG [Suspect]
     Indication: LYMPHADENITIS
     Route: 048
     Dates: start: 20060601, end: 20060714
  2. ISCOTIN NEO [Concomitant]
  3. THEOLONG [Concomitant]
     Route: 048
     Dates: start: 20051220
  4. LIPITOR [Concomitant]
     Route: 048
     Dates: start: 20051130
  5. AZELASTINE HCL [Concomitant]
     Route: 048
     Dates: start: 20051220
  6. AMLODIN [Concomitant]
     Route: 048
     Dates: start: 20051130
  7. MUCOSTA [Concomitant]
     Route: 048
     Dates: start: 20051207
  8. GASTER D [Concomitant]
     Route: 048
  9. LASIX [Concomitant]
     Route: 048
     Dates: start: 20051128
  10. MUCOSOLVAN [Concomitant]
     Route: 048
     Dates: start: 20051220
  11. BROTIZOLAM [Concomitant]
     Route: 048
     Dates: start: 20051208

REACTIONS (1)
  - HYPERGLYCAEMIA [None]
